FAERS Safety Report 6290437-0 (Version None)
Quarter: 2009Q3

REPORT INFORMATION
  Report Type: 
  Country: None (occurrence: None)
  Receive Date: 20090730
  Receipt Date: 20090414
  Transmission Date: 20100115
  Serious: No
  Sender: FDA-Public Use
  Company Number: US-BRISTOL-MYERS SQUIBB COMPANY-14586622

PATIENT
  Sex: Female

DRUGS (2)
  1. COUMADIN [Suspect]
  2. ACYCLOVIR [Suspect]
     Indication: HERPES ZOSTER
     Dosage: AICLCOVIR 200MG CAPSULES.
     Route: 048
     Dates: start: 20090224, end: 20090304

REACTIONS (3)
  - INTERNATIONAL NORMALISED RATIO DECREASED [None]
  - PRURITUS [None]
  - RASH ERYTHEMATOUS [None]
